FAERS Safety Report 7627448-6 (Version None)
Quarter: 2011Q3

REPORT INFORMATION
  Report Type: 
  Country: None (occurrence: None)
  Receive Date: 20110721
  Receipt Date: 20110712
  Transmission Date: 20111222
  Serious: Yes (Hospitalization)
  Sender: FDA-Public Use
  Company Number: US-BAXTER-2011BH022622

PATIENT
  Sex: Female

DRUGS (2)
  1. ANTIEPILEPTICS [Concomitant]
     Indication: CONVULSION
  2. DIANEAL [Suspect]
     Indication: PERITONEAL DIALYSIS
     Route: 033
     Dates: start: 20070101

REACTIONS (2)
  - CONVULSION [None]
  - ASTHENIA [None]
